FAERS Safety Report 8763428 (Version 1)
Quarter: 2012Q4

REPORT INFORMATION
  Report Type: Spontaneous
  Country: US (occurrence: None)
  Receive Date: 20120828
  Receipt Date: 20120828
  Transmission Date: 20130627
  Serious: Yes (Death)
  Sender: FDA-Public Use
  Company Number: UTC-020844

PATIENT
  Age: 73 Year
  Sex: Female
  Weight: 65.9 kg

DRUGS (2)
  1. TYVASO [Suspect]
     Indication: PULMONARY HYPERTENSION SECONDARY
     Route: 055
     Dates: start: 20120628
  2. ADCIRCA (TADALAFIL) [Concomitant]

REACTIONS (2)
  - Cardiac arrest [None]
  - Pulseless electrical activity [None]
